FAERS Safety Report 20582904 (Version 1)
Quarter: 2022Q1

REPORT INFORMATION
  Report Type: Spontaneous
  Country: US (occurrence: US)
  Receive Date: 20220311
  Receipt Date: 20220311
  Transmission Date: 20220423
  Serious: Yes (Death, Hospitalization, Other)
  Sender: FDA-Public Use
  Company Number: US-TEVA-2022-US-2016094

PATIENT
  Age: 83 Year
  Sex: Male
  Weight: 77.56 kg

DRUGS (12)
  1. HYDROCHLOROTHIAZIDE\VALSARTAN [Suspect]
     Active Substance: HYDROCHLOROTHIAZIDE\VALSARTAN
     Indication: Hypertension
     Dosage: 160MG/12.5MG
     Route: 065
     Dates: start: 20160827, end: 20160926
  2. HYDROCHLOROTHIAZIDE\VALSARTAN [Suspect]
     Active Substance: HYDROCHLOROTHIAZIDE\VALSARTAN
     Indication: Hypertension
     Dosage: 160MG/12.5MG
     Route: 065
     Dates: start: 20160928, end: 20181004
  3. MIRALAX [Concomitant]
     Active Substance: POLYETHYLENE GLYCOL 3350
     Indication: Constipation
     Dates: start: 2015, end: 2019
  4. ACETAMINOPHEN [Concomitant]
     Active Substance: ACETAMINOPHEN
     Indication: Pain
     Dates: start: 2015, end: 2019
  5. LISINOPRIL [Concomitant]
     Active Substance: LISINOPRIL
     Indication: Hypertension
     Dosage: 40MG DAILY
     Dates: start: 2015, end: 2016
  6. ALLOPURINOL [Concomitant]
     Active Substance: ALLOPURINOL
     Indication: Gout
     Dosage: 100MG TWICE DAILY
     Dates: start: 2014, end: 2017
  7. DILTIAZEM [Concomitant]
     Active Substance: DILTIAZEM
     Indication: Hypertension
     Dosage: 90MG TWICE DAILY
     Dates: start: 2014, end: 2015
  8. LEVOTHYROXINE [Concomitant]
     Active Substance: LEVOTHYROXINE
     Indication: Hypothyroidism
     Dosage: 175MCG DAILY
     Dates: start: 2014, end: 2019
  9. FLUOCINONIDE [Concomitant]
     Active Substance: FLUOCINONIDE
     Indication: Product used for unknown indication
     Dosage: 0.05% OINTMENT AS NEEDED
     Dates: start: 2015, end: 2016
  10. Olmesaran/Hydrochlorothiazide [Concomitant]
     Indication: Hypertension
     Dosage: 20-12.5MG
     Dates: start: 2018, end: 2019
  11. ONDANSETRON [Concomitant]
     Active Substance: ONDANSETRON
     Indication: Nausea
     Dosage: 8MG AS NEEDED
     Dates: start: 2018, end: 2019
  12. CARTIA XT [Concomitant]
     Active Substance: DILTIAZEM HYDROCHLORIDE
     Indication: Hypertension
     Dosage: 240MG DAILY
     Dates: start: 2017, end: 2018

REACTIONS (2)
  - Gastric cancer stage IV [Fatal]
  - Hepatic cancer metastatic [Unknown]
